FAERS Safety Report 7921434-4 (Version None)
Quarter: 2011Q4

REPORT INFORMATION
  Report Type: 
  Country: None (occurrence: None)
  Receive Date: 20111117
  Receipt Date: 20111110
  Transmission Date: 20120403
  Serious: Yes (Other)
  Sender: FDA-Public Use
  Company Number: US-CELGENEUS-163-21880-09100347

PATIENT
  Sex: Male

DRUGS (4)
  1. REVLIMID [Suspect]
     Dosage: 15 MILLIGRAM
     Route: 048
     Dates: start: 20110918
  2. REVLIMID [Suspect]
     Indication: MULTIPLE MYELOMA
     Dosage: 25 MILLIGRAM
     Route: 048
     Dates: start: 20090901, end: 20101119
  3. NIASPAN [Concomitant]
     Route: 065
  4. ASPIRIN [Concomitant]
     Indication: ANTICOAGULANT THERAPY
     Dosage: 325 MILLIGRAM
     Route: 065

REACTIONS (11)
  - FULL BLOOD COUNT DECREASED [None]
  - THROMBOSIS [None]
  - DYSGEUSIA [None]
  - RASH [None]
  - FATIGUE [None]
  - ERYTHEMA [None]
  - DIARRHOEA [None]
  - HAEMORRHAGE [None]
  - CONSTIPATION [None]
  - DYSPNOEA [None]
  - DRY SKIN [None]
